FAERS Safety Report 17353366 (Version 1)
Quarter: 2020Q1

REPORT INFORMATION
  Report Type: Report from Study
  Country: ES (occurrence: ES)
  Receive Date: 20200131
  Receipt Date: 20200131
  Transmission Date: 20200409
  Serious: Yes (Hospitalization)
  Sender: FDA-Public Use
  Company Number: ES-TEVA-2020-ES-1177712

PATIENT
  Age: 50 Year
  Sex: Male

DRUGS (6)
  1. MICOFENOLATO DE MOFETILO (7330LM) [Concomitant]
     Active Substance: MYCOPHENOLATE MOFETIL
     Indication: RENAL TRANSPLANT
     Dosage: 1 G
     Route: 048
     Dates: start: 20170111
  2. ATORVASTATINA (7400A) [Concomitant]
     Active Substance: ATORVASTATIN
     Dosage: 20 MG
     Route: 048
     Dates: start: 20170111, end: 20180128
  3. AMLODIPINO (2503A) [Suspect]
     Active Substance: AMLODIPINE BESYLATE
     Indication: HYPERTENSION
     Dosage: 5 MG
     Route: 048
     Dates: start: 20110114
  4. ENALAPRIL MALEATO (2142MA [Interacting]
     Active Substance: ENALAPRIL MALEATE
     Indication: HYPERTENSION
     Dosage: 20 MG
     Route: 048
     Dates: start: 20110114, end: 20180128
  5. ENVARSUS 1MG COMPRIMIDOS DE LIBERACION PROLONGADA 30 COMPRIMIDOS [Concomitant]
     Indication: RENAL TRANSPLANT
     Dosage: 3 MG
     Route: 048
     Dates: start: 20170111
  6. PREDNISONA (886A) [Concomitant]
     Active Substance: PREDNISONE
     Indication: RENAL TRANSPLANT
     Route: 048
     Dates: start: 20170111

REACTIONS (2)
  - Drug interaction [Unknown]
  - Acute kidney injury [Recovered/Resolved]

NARRATIVE: CASE EVENT DATE: 201801
